FAERS Safety Report 4428895-6 (Version None)
Quarter: 2004Q3

REPORT INFORMATION
  Report Type: 
  Country: None (occurrence: None)
  Receive Date: 20040805
  Receipt Date: 20040721
  Transmission Date: 20050211
  Serious: Yes (Hospitalization)
  Sender: FDA-Public Use
  Company Number: 2004-01450

PATIENT
  Age: 76 Year
  Sex: Male

DRUGS (1)
  1. IMMUCYST (BCG - IT (CONNAUGHT)), AVENTIS PASTEUR LTD., C1776AA, I1 [Suspect]
     Dosage: 81MG, B. IN., BLADDER
     Dates: start: 20040206

REACTIONS (13)
  - ABDOMINAL DISCOMFORT [None]
  - BLOOD FIBRINOGEN INCREASED [None]
  - BOVINE TUBERCULOSIS [None]
  - CYTOLYTIC HEPATITIS [None]
  - DECREASED APPETITE [None]
  - EPIDIDYMITIS [None]
  - GENERAL PHYSICAL HEALTH DETERIORATION [None]
  - HICCUPS [None]
  - LABORATORY TEST ABNORMAL [None]
  - PYURIA [None]
  - SUBDIAPHRAGMATIC ABSCESS [None]
  - WEIGHT DECREASED [None]
  - WHITE BLOOD CELL COUNT INCREASED [None]
